FAERS Safety Report 19022496 (Version 3)
Quarter: 2021Q2

REPORT INFORMATION
  Report Type: Spontaneous
  Country: CA (occurrence: CA)
  Receive Date: 20210318
  Receipt Date: 20210401
  Transmission Date: 20210717
  Serious: Yes (Death, Hospitalization)
  Sender: FDA-Public Use
  Company Number: CA-UNITED THERAPEUTICS-UNT-2021-004442

PATIENT
  Age: 66 Year
  Sex: Male

DRUGS (3)
  1. REMODULIN [Suspect]
     Active Substance: TREPROSTINIL
     Indication: PULMONARY ARTERIAL HYPERTENSION
     Dosage: UNK, CONTINUING
     Route: 058
     Dates: start: 20171120
  2. REMODULIN [Suspect]
     Active Substance: TREPROSTINIL
     Dosage: UNK UNK, CONTINUING (DOSE DECREASED)
     Route: 058
     Dates: start: 20210317, end: 20210326
  3. REMODULIN [Suspect]
     Active Substance: TREPROSTINIL
     Dosage: 0.061 ?G/KG, CONTINUING
     Route: 058

REACTIONS (8)
  - Death [Fatal]
  - Infusion site swelling [Unknown]
  - Dyspnoea [Unknown]
  - Oxygen saturation decreased [Unknown]
  - Fluid overload [Unknown]
  - Infusion site erythema [Unknown]
  - Hypoxia [Unknown]
  - Pneumonia [Unknown]

NARRATIVE: CASE EVENT DATE: 20210310
